FAERS Safety Report 21418774 (Version 2)
Quarter: 2022Q4

REPORT INFORMATION
  Report Type: Spontaneous
  Country: AT (occurrence: AT)
  Receive Date: 20221006
  Receipt Date: 20221019
  Transmission Date: 20230112
  Serious: Yes (Hospitalization, Other)
  Sender: FDA-Public Use
  Company Number: AT-TEVA-2022-AT-2080287

PATIENT
  Age: 60 Year
  Sex: Male

DRUGS (10)
  1. DOXYCYCLINE [Suspect]
     Active Substance: DOXYCYCLINE
     Indication: Ulcerative keratitis
     Dosage: 200 MILLIGRAM DAILY;
     Route: 048
  2. NIVOLUMAB [Suspect]
     Active Substance: NIVOLUMAB
     Indication: Metastatic malignant melanoma
     Route: 065
  3. IPILIMUMAB [Suspect]
     Active Substance: IPILIMUMAB
     Indication: Metastatic malignant melanoma
     Route: 065
  4. PREDNISOLONE ACETATE [Suspect]
     Active Substance: PREDNISOLONE ACETATE
     Indication: Ulcerative keratitis
     Dosage: EYE DROPS FOUR TIMES A DAY
     Route: 061
  5. CYCLOSPORINE [Suspect]
     Active Substance: CYCLOSPORINE
     Indication: Ulcerative keratitis
     Dosage: ADMINISTERED THREE TIMES DAILY.
     Route: 061
  6. CORTISONE [Suspect]
     Active Substance: CORTISONE
     Indication: Ulcerative keratitis
     Dosage: INITIAL DOSE NOT STATED.
     Route: 048
  7. CORTISONE [Suspect]
     Active Substance: CORTISONE
     Dosage: DOSE AT THE END OF TAPERING., 5 MG
     Route: 048
  8. OFLOXA-VISION SINE [Concomitant]
     Indication: Evidence based treatment
     Dosage: ADMINISTERED 3 MG/ML.
     Route: 065
  9. OFLOXA-VISION SINE [Concomitant]
     Dosage: 4 TIMES A DAY
     Route: 065
  10. DERMABOND [Concomitant]
     Active Substance: OCRYLATE
     Indication: Ulcerative keratitis
     Dosage: DROPS
     Route: 065

REACTIONS (9)
  - Ulcerative keratitis [Recovering/Resolving]
  - Arthritis [Unknown]
  - Neovascularisation [Recovering/Resolving]
  - Dry eye [Recovering/Resolving]
  - Astigmatism [Recovering/Resolving]
  - Cataract [Recovering/Resolving]
  - Corneal perforation [Recovering/Resolving]
  - Iris disorder [Recovering/Resolving]
  - Drug ineffective [Unknown]
